FAERS Safety Report 4596269-3 (Version None)
Quarter: 2005Q1

REPORT INFORMATION
  Report Type: 
  Country: None (occurrence: None)
  Receive Date: 20050225
  Receipt Date: 20041007
  Transmission Date: 20050727
  Serious: Yes (Hospitalization)
  Sender: FDA-Public Use
  Company Number: 2004SE05518

PATIENT
  Age: 16 Year
  Sex: Female
  Weight: 48 kg

DRUGS (2)
  1. BETALOC ZOK ^ASTRA^ [Suspect]
     Dosage: 3 G ONCE PO
     Route: 048
     Dates: start: 20040915, end: 20040915
  2. TERTENSIF [Suspect]
     Dosage: 6 DF ONCE PO
     Route: 048
     Dates: start: 20040915, end: 20040915

REACTIONS (5)
  - BRADYCARDIA [None]
  - HYPOTENSION [None]
  - INTENTIONAL MISUSE [None]
  - SOMNOLENCE [None]
  - SUICIDE ATTEMPT [None]
